FAERS Safety Report 8576825-8 (Version None)
Quarter: 2012Q3

REPORT INFORMATION
  Report Type: 
  Country: None (occurrence: None)
  Receive Date: 20120807
  Receipt Date: 20120801
  Transmission Date: 20120928
  Serious: Yes (Other)
  Sender: FDA-Public Use
  Company Number: AU-COVIDIEN/TYCO HEALTHCARE/MALLINCKRODT-T201202986

PATIENT
  Sex: Female

DRUGS (1)
  1. OPTIRAY 160 [Suspect]
     Indication: COMPUTERISED TOMOGRAM
     Dosage: 75 ML, SINGLE
     Route: 042
     Dates: start: 20120731, end: 20120731

REACTIONS (3)
  - SENSATION OF FOREIGN BODY [None]
  - THROAT TIGHTNESS [None]
  - DYSPNOEA [None]
